FAERS Safety Report 20554670 (Version 2)
Quarter: 2022Q2

REPORT INFORMATION
  Report Type: Spontaneous
  Country: US (occurrence: US)
  Receive Date: 20220304
  Receipt Date: 20220503
  Transmission Date: 20220721
  Serious: No
  Sender: FDA-Public Use
  Company Number: US-JNJFOC-20220302773

PATIENT
  Age: 58 Year
  Sex: Female
  Weight: 63.106 kg

DRUGS (5)
  1. SPRAVATO [Suspect]
     Active Substance: ESKETAMINE
     Indication: Product used for unknown indication
     Dates: start: 20220301, end: 20220301
  2. CITALOPRAM [Concomitant]
     Active Substance: CITALOPRAM HYDROBROMIDE
     Indication: Depression
     Dosage: DAILY
     Dates: start: 20190806
  3. MODAFINIL [Concomitant]
     Active Substance: MODAFINIL
     Indication: Depression
     Dosage: DAILY PRN
     Dates: start: 20190812
  4. METHOTREXATE [Concomitant]
     Active Substance: METHOTREXATE
     Dosage: WEEKLY
  5. AMLODIPINE [Concomitant]
     Active Substance: AMLODIPINE BESYLATE
     Dosage: DAILY

REACTIONS (1)
  - Urticaria [Recovered/Resolved]

NARRATIVE: CASE EVENT DATE: 20220301
